FAERS Safety Report 22012546 (Version 1)
Quarter: 2023Q1

REPORT INFORMATION
  Report Type: Spontaneous
  Country: US (occurrence: US)
  Receive Date: 20230220
  Receipt Date: 20230220
  Transmission Date: 20230418
  Serious: No
  Sender: FDA-Public Use
  Company Number: US-AMGEN-USASP2023027674

PATIENT
  Sex: Female

DRUGS (4)
  1. LUMAKRAS [Suspect]
     Active Substance: SOTORASIB
     Indication: Varicose vein
     Dosage: 8TABLETS BY MOUTH DAILY
     Route: 048
  2. METHADONE HYDROCHLORIDE [Concomitant]
     Active Substance: METHADONE HYDROCHLORIDE
     Dosage: 10 MILLIGRAM
  3. ALBUTEROL [Concomitant]
     Active Substance: ALBUTEROL
     Dosage: 108 (90, ALBUTE ROL SU ;NEB (2.5 MG/,
  4. ALPRAZOLAM [Concomitant]
     Active Substance: ALPRAZOLAM
     Dosage: 0.5 MILLIGRAM

REACTIONS (2)
  - Sleep disorder [Unknown]
  - Off label use [Unknown]
